FAERS Safety Report 4293012-2 (Version None)
Quarter: 2004Q1

REPORT INFORMATION
  Report Type: 
  Country: None (occurrence: None)
  Receive Date: 20040210
  Receipt Date: 20040129
  Transmission Date: 20041129
  Serious: Yes (Other)
  Sender: FDA-Public Use
  Company Number: NSADSS2003008164

PATIENT
  Age: 53 Year
  Sex: Female

DRUGS (3)
  1. REMICADE [Suspect]
     Indication: RHEUMATOID ARTHRITIS
     Dosage: 1 IN 8 WEEK, INTRAVENOUS DRIP
     Route: 041
  2. CYTOXAN [Suspect]
     Indication: RETINAL VASCULITIS
     Dosage: IN 1 DAY
  3. CYCLOSPORINE [Concomitant]

REACTIONS (2)
  - LEUKOPENIA [None]
  - MOLLUSCUM CONTAGIOSUM [None]
